FAERS Safety Report 8047723-3 (Version None)
Quarter: 2012Q1

REPORT INFORMATION
  Report Type: 
  Country: None (occurrence: None)
  Receive Date: 20120116
  Receipt Date: 20120112
  Transmission Date: 20120608
  Serious: Yes (Death)
  Sender: FDA-Public Use
  Company Number: PHHY2012US002705

PATIENT
  Age: 29 Year
  Sex: Female

DRUGS (4)
  1. AZATHIOPRINE [Suspect]
     Dosage: UNK UKN, UNK
  2. PREDNISONE [Suspect]
     Dosage: UNK UKN, UNK
  3. INFLIXIMAB [Suspect]
     Indication: CROHN'S DISEASE
     Dosage: UNK UKN, UNK
  4. MERCAPTOPURINE [Suspect]
     Dosage: UNK UKN, UNK

REACTIONS (1)
  - PNEUMONIA LEGIONELLA [None]
